FAERS Safety Report 12091321 (Version 2)
Quarter: 2016Q2

REPORT INFORMATION
  Report Type: Report from Study
  Country: EG (occurrence: EG)
  Receive Date: 20160218
  Receipt Date: 20160406
  Transmission Date: 20160815
  Serious: Yes (Other)
  Sender: FDA-Public Use
  Company Number: EG-NOVOPROD-456288

PATIENT
  Sex: Female

DRUGS (4)
  1. MIXTARD 30 HM PENFILL [Suspect]
     Active Substance: INSULIN HUMAN
     Indication: DIABETES MELLITUS
     Dosage: 20 IU, TID (20 BEFORE BREAKFAST - 20 BEFORE LUNCH - 20 BEFORE DINNER)
     Route: 065
  2. ACTRAPID [Suspect]
     Active Substance: INSULIN HUMAN
     Indication: DIABETES MELLITUS
     Dosage: 15 IU, TID (15 UNITS BEFORE BREAKFAST-15 UNITS BEFORE LUNCH-15 UNITS BEFORE DINNER)
     Route: 065
     Dates: start: 2014
  3. NOVOMIX 30 FLEXPEN [Suspect]
     Active Substance: INSULIN ASPART
     Indication: DIABETES MELLITUS
     Dosage: UNK
     Route: 065
     Dates: start: 20150711
  4. MIXTARD HUMAN 70/30 [Suspect]
     Active Substance: INSULIN HUMAN
     Indication: DIABETES MELLITUS
     Dosage: 30 IU, TID (30 BEFORE BREAKFAST - 30 BEFORE LUNCH -30 BEFORE DINNER)
     Route: 065

REACTIONS (3)
  - Hypersensitivity [Not Recovered/Not Resolved]
  - Generalised oedema [Recovered/Resolved]
  - Scar [Not Recovered/Not Resolved]
